FAERS Safety Report 19941952 (Version 3)
Quarter: 2022Q1

REPORT INFORMATION
  Report Type: Other
  Country: JP (occurrence: JP)
  Receive Date: 20211012
  Receipt Date: 20220317
  Transmission Date: 20220423
  Serious: Yes (Other)
  Sender: FDA-Public Use
  Company Number: JP-CHUGAI-2021021134

PATIENT
  Age: 70 Year
  Sex: Female

DRUGS (8)
  1. ENTRECTINIB [Suspect]
     Active Substance: ENTRECTINIB
     Indication: Non-small cell lung cancer
     Route: 048
     Dates: start: 20210327, end: 20210402
  2. ENTRECTINIB [Suspect]
     Active Substance: ENTRECTINIB
     Route: 048
     Dates: start: 20210409, end: 20210416
  3. ENTRECTINIB [Suspect]
     Active Substance: ENTRECTINIB
     Route: 048
     Dates: start: 20210421, end: 20210929
  4. ENTRECTINIB [Suspect]
     Active Substance: ENTRECTINIB
     Route: 048
     Dates: start: 20211013
  5. LUNESTA [Concomitant]
     Active Substance: ESZOPICLONE
     Route: 048
  6. NEXIUM [Concomitant]
     Active Substance: ESOMEPRAZOLE MAGNESIUM
     Route: 048
  7. LIPOVAS (JAPAN) [Concomitant]
     Route: 048
  8. KETOPROFEN [Concomitant]
     Active Substance: KETOPROFEN
     Route: 065

REACTIONS (2)
  - Renal disorder [Not Recovered/Not Resolved]
  - Taste disorder [Not Recovered/Not Resolved]
